FAERS Safety Report 21074475 (Version 4)
Quarter: 2022Q4

REPORT INFORMATION
  Report Type: Spontaneous
  Country: US (occurrence: US)
  Receive Date: 20220713
  Receipt Date: 20221103
  Transmission Date: 20230113
  Serious: No
  Sender: FDA-Public Use
  Company Number: US-AMGEN-USASP2022116313

PATIENT
  Age: 68 Year
  Sex: Female

DRUGS (18)
  1. REPATHA [Suspect]
     Active Substance: EVOLOCUMAB
     Indication: Blood cholesterol abnormal
     Dosage: 140 MILLIGRAM, Q2WK
     Route: 065
     Dates: start: 202206
  2. REPATHA [Suspect]
     Active Substance: EVOLOCUMAB
     Indication: Hypercholesterolaemia
     Dosage: UNK
     Route: 058
  3. LOSARTAN [Concomitant]
     Active Substance: LOSARTAN
     Indication: Product used for unknown indication
     Dosage: 100 MILLIGRAM
  4. LOSARTAN [Concomitant]
     Active Substance: LOSARTAN
     Route: 065
  5. LOSARTAN [Concomitant]
     Active Substance: LOSARTAN
     Route: 065
  6. LOSARTAN [Concomitant]
     Active Substance: LOSARTAN
     Route: 065
  7. LOSARTAN [Concomitant]
     Active Substance: LOSARTAN
     Route: 065
  8. LOSARTAN [Concomitant]
     Active Substance: LOSARTAN
     Route: 065
  9. LOSARTAN [Concomitant]
     Active Substance: LOSARTAN
     Route: 065
  10. LOSARTAN [Concomitant]
     Active Substance: LOSARTAN
     Route: 065
  11. TRULICITY [Concomitant]
     Active Substance: DULAGLUTIDE
  12. OZEMPIC [Concomitant]
     Active Substance: SEMAGLUTIDE
  13. ASPIRIN [Concomitant]
     Active Substance: ASPIRIN
     Dosage: 2 BAYER, QD
  14. CALCIUM [Concomitant]
     Active Substance: CALCIUM
  15. MAGNESIUM [Concomitant]
     Active Substance: MAGNESIUM
  16. ZINC [Concomitant]
     Active Substance: ZINC
  17. PYRIDOXINE HYDROCHLORIDE [Concomitant]
     Active Substance: PYRIDOXINE HYDROCHLORIDE
  18. BENEFIBER [Concomitant]
     Active Substance: STARCH, WHEAT

REACTIONS (3)
  - Device difficult to use [Unknown]
  - Wrong technique in product usage process [Unknown]
  - Product dose omission issue [Unknown]

NARRATIVE: CASE EVENT DATE: 20220603
